FAERS Safety Report 11151661 (Version 1)
Quarter: 2015Q2

REPORT INFORMATION
  Report Type: Spontaneous
  Country: CN (occurrence: CN)
  Receive Date: 20150601
  Receipt Date: 20150601
  Transmission Date: 20150821
  Serious: Yes (Other)
  Sender: FDA-Public Use
  Company Number: CN-BAXTER-2015BAX027863

PATIENT
  Age: 56 Year
  Sex: Female
  Weight: 69 kg

DRUGS (2)
  1. SHUXUENING [Suspect]
     Active Substance: GINKGO
     Indication: CARDIOVASCULAR DISORDER
     Route: 041
     Dates: start: 20141211, end: 20141217
  2. 0.9% SODIUM CHLORIDE INJECTION [Suspect]
     Active Substance: SODIUM CHLORIDE
     Indication: MEDICATION DILUTION
     Route: 041
     Dates: start: 20141211, end: 20141217

REACTIONS (7)
  - Vomiting [Recovering/Resolving]
  - Asthenia [Unknown]
  - Discomfort [Recovering/Resolving]
  - Throat tightness [Unknown]
  - Dizziness [Unknown]
  - Chills [Recovering/Resolving]
  - Nausea [Recovering/Resolving]

NARRATIVE: CASE EVENT DATE: 20141217
